FAERS Safety Report 5735369-9 (Version None)
Quarter: 2008Q2

REPORT INFORMATION
  Report Type: 
  Country: None (occurrence: None)
  Receive Date: 20080505
  Receipt Date: 20080128
  Transmission Date: 20081010
  Serious: Yes (Other)
  Sender: FDA-Public Use
  Company Number: PHEH2007US15798

PATIENT
  Sex: Male

DRUGS (2)
  1. EXELON [Suspect]
     Indication: DEMENTIA ALZHEIMER'S TYPE
     Dosage: 9.5 MG, TRANSDERMAL
     Route: 062
     Dates: start: 20071212, end: 20071213
  2. NAMENDA [Concomitant]

REACTIONS (2)
  - AGITATION [None]
  - HALLUCINATION [None]
